FAERS Safety Report 9618205 (Version 3)
Quarter: 2013Q4

REPORT INFORMATION
  Report Type: Spontaneous
  Country: US (occurrence: US)
  Receive Date: 20131014
  Receipt Date: 20131213
  Transmission Date: 20140711
  Serious: Yes (Other)
  Sender: FDA-Public Use
  Company Number: US-BIOGENIDEC-2013BI097862

PATIENT
  Age: 48 Year
  Sex: Female

DRUGS (3)
  1. AVONEX [Suspect]
     Indication: MULTIPLE SCLEROSIS
     Route: 030
     Dates: start: 20090313, end: 20120724
  2. AVONEX [Suspect]
     Indication: MULTIPLE SCLEROSIS
     Route: 030
     Dates: start: 20120725, end: 201311
  3. AVONEX [Suspect]
     Indication: MULTIPLE SCLEROSIS
     Route: 030
     Dates: start: 20120725, end: 201311

REACTIONS (17)
  - Heat stroke [Recovered/Resolved]
  - Posture abnormal [Recovered/Resolved]
  - Hypoaesthesia [Recovered/Resolved]
  - Migraine [Recovered/Resolved]
  - Blindness unilateral [Recovered/Resolved with Sequelae]
  - Hypertension [Not Recovered/Not Resolved]
  - Agitation [Unknown]
  - Logorrhoea [Unknown]
  - Vision blurred [Unknown]
  - Feeling abnormal [Unknown]
  - Multiple sclerosis relapse [Recovered/Resolved]
  - Paraesthesia [Recovered/Resolved]
  - Emotional distress [Recovered/Resolved]
  - Hypersensitivity [Unknown]
  - Anxiety [Unknown]
  - Heart rate increased [Unknown]
  - Chest pain [Unknown]
